FAERS Safety Report 21172042 (Version 3)
Quarter: 2022Q3

REPORT INFORMATION
  Report Type: Spontaneous
  Country: US (occurrence: US)
  Receive Date: 20220804
  Receipt Date: 20220920
  Transmission Date: 20221026
  Serious: No
  Sender: FDA-Public Use
  Company Number: US-BRISTOL-MYERS SQUIBB COMPANY-2022-076258

PATIENT
  Age: 70 Year
  Sex: Female

DRUGS (2)
  1. REVLIMID [Suspect]
     Active Substance: LENALIDOMIDE
     Indication: Thyroid mass
     Dosage: TAKE 1 CAPSULE BY ?MOUTH EVERY DAY ?FOR 14 DAYS ON ?THEN 7 DAYS OF
     Route: 048
     Dates: start: 20220707
  2. REVLIMID [Suspect]
     Active Substance: LENALIDOMIDE
     Indication: Plasma cell myeloma

REACTIONS (3)
  - Nausea [Unknown]
  - Back pain [Unknown]
  - Arthralgia [Unknown]
